FAERS Safety Report 17121842 (Version 2)
Quarter: 2019Q4

REPORT INFORMATION
  Report Type: Spontaneous
  Country: PT (occurrence: PT)
  Receive Date: 20191206
  Receipt Date: 20191211
  Transmission Date: 20200122
  Serious: Yes (Life-Threatening, Hospitalization)
  Sender: FDA-Public Use
  Company Number: NVSC2019PT057908

PATIENT
  Age: 63 Year
  Sex: Female

DRUGS (3)
  1. GLICLAZIDE [Suspect]
     Active Substance: GLICLAZIDE
     Indication: DIABETES MELLITUS
     Dosage: 60 MG, QD
     Route: 065
  2. GLICLAZIDE [Suspect]
     Active Substance: GLICLAZIDE
     Dosage: 80 MG (12/12HR)
     Route: 065
  3. METFORMIN [Suspect]
     Active Substance: METFORMIN HYDROCHLORIDE
     Indication: DIABETES MELLITUS
     Dosage: 2000 MG, QD
     Route: 065

REACTIONS (12)
  - Respiratory failure [Unknown]
  - Hyperkalaemia [Unknown]
  - Vomiting [Unknown]
  - Diabetic ketoacidosis [Unknown]
  - Diarrhoea [Unknown]
  - Psychomotor hyperactivity [Unknown]
  - Acute kidney injury [Unknown]
  - Lactic acidosis [Unknown]
  - Haemodynamic instability [Unknown]
  - Hyperlactacidaemia [Unknown]
  - Nausea [Unknown]
  - Metabolic acidosis [Unknown]
